FAERS Safety Report 9431883 (Version 1)
Quarter: 2013Q3

REPORT INFORMATION
  Report Type: Spontaneous
  Country: US (occurrence: None)
  Receive Date: 20130726
  Receipt Date: 20130726
  Transmission Date: 20140515
  Serious: Yes (Hospitalization)
  Sender: FDA-Public Use
  Company Number: 1811716

PATIENT
  Age: 74 Year
  Sex: Female

DRUGS (14)
  1. OXALIPLATIN [Suspect]
     Indication: COLON CANCER
  2. CALCIUM FOLINATE [Suspect]
  3. FLUOROURACIL [Suspect]
  4. SERTRALINE [Concomitant]
  5. LISINOPRIL [Concomitant]
  6. ATENOLOL [Concomitant]
  7. MULTIVITAMINS [Concomitant]
  8. FOLIC ACID [Concomitant]
  9. SIMVASTATIN [Concomitant]
  10. WARFARIN [Concomitant]
  11. MEGESTROL ACETATE [Concomitant]
  12. FERROUS FUMARATE [Concomitant]
  13. ONDANSETRON [Concomitant]
  14. PROCHLORPERAZINE [Concomitant]

REACTIONS (3)
  - Organising pneumonia [None]
  - Neutropenia [None]
  - Thrombocytopenia [None]
